FAERS Safety Report 5779579-3 (Version None)
Quarter: 2008Q2

REPORT INFORMATION
  Report Type: 
  Country: None (occurrence: None)
  Receive Date: 20080617
  Receipt Date: 20080604
  Transmission Date: 20081010
  Serious: Yes (Hospitalization)
  Sender: FDA-Public Use
  Company Number: GXKR2008CH05265

PATIENT
  Age: 62 Year
  Sex: Male

DRUGS (14)
  1. PREDNISONE [Suspect]
     Indication: IMMUNOSUPPRESSION
  2. CYCLOSPORINE [Suspect]
     Indication: IMMUNOSUPPRESSION
     Dosage: 50 MG, BID (TARGET TROUGH LEVEL 60 UG/L)
  3. SIMVASTATIN [Suspect]
     Dosage: 40 MG/DAILY, ORAL
     Route: 048
  4. CLARITHROMYCIN [Suspect]
     Indication: LUNG INFECTION
     Dosage: 250 MG, TID (ADJUSTED TO RENAL FUNCTION)
  5. CLARITHROMYCIN [Suspect]
     Indication: RHODOCOCCUS INFECTION
     Dosage: 250 MG, TID (ADJUSTED TO RENAL FUNCTION)
  6. MYFORTIC [Suspect]
     Indication: IMMUNOSUPPRESSION
     Dosage: 540 MG, BID, ORAL; 360 MG, BID REDUCED DOSE
     Route: 048
  7. ACETYLSALICYLIC ACID SRT [Concomitant]
  8. ESOMEPRAZOLE MAGNESIUM [Concomitant]
  9. ANTIHYPERTENSIVES (NO INGREDIENTS/SUBSTANCES) [Concomitant]
  10. VITAMN D (ERGOCALCIFEROL) [Concomitant]
  11. ALENDRONIC ACID [Concomitant]
  12. AMOXICILLIN /CLAVULANATE POTASSIUM (AMOXICILLIN, CLAVULANATE POTASSIUM [Concomitant]
  13. VANCOMYCIN [Concomitant]
  14. CIPROFLOXACIN [Concomitant]

REACTIONS (18)
  - BACTERIAL INFECTION [None]
  - CHEST PAIN [None]
  - DRUG INTERACTION [None]
  - DYSPNOEA [None]
  - DYSSTASIA [None]
  - HAEMOPTYSIS [None]
  - MALAISE [None]
  - MYOPATHY [None]
  - NIGHT SWEATS [None]
  - PARAPARESIS [None]
  - PLEURAL EFFUSION [None]
  - PLEURISY [None]
  - PNEUMONIA [None]
  - PULMONARY MASS [None]
  - PYREXIA [None]
  - RHODOCOCCUS INFECTION [None]
  - SOMNOLENCE [None]
  - WEIGHT DECREASED [None]
